FAERS Safety Report 14337939 (Version 1)
Quarter: 2017Q4

REPORT INFORMATION
  Report Type: Spontaneous
  Country: JP (occurrence: JP)
  Receive Date: 20171229
  Receipt Date: 20171229
  Transmission Date: 20180321
  Serious: Yes (Hospitalization, Other)
  Sender: FDA-Public Use
  Company Number: JP-NOVOPROD-579252

PATIENT
  Age: 74 Year
  Sex: Male
  Weight: 64.5 kg

DRUGS (1)
  1. HUMAN INSULIN [Suspect]
     Active Substance: INSULIN HUMAN
     Indication: TYPE 2 DIABETES MELLITUS
     Dosage: UNK
     Route: 065
     Dates: start: 1993, end: 1995

REACTIONS (3)
  - Hypoglycaemia [Recovered/Resolved]
  - Anti-insulin antibody positive [Recovered/Resolved]
  - Hyperglycaemia [Recovered/Resolved]
